FAERS Safety Report 4689113-7 (Version None)
Quarter: 2005Q2

REPORT INFORMATION
  Report Type: 
  Country: None (occurrence: None)
  Receive Date: 20050613
  Receipt Date: 20050602
  Transmission Date: 20051028
  Serious: Yes (Other)
  Sender: FDA-Public Use
  Company Number: 2005AP03222

PATIENT
  Age: 70 Year
  Sex: Male
  Weight: 70.6 kg

DRUGS (15)
  1. CRESTOR [Suspect]
     Indication: DYSLIPIDAEMIA
     Route: 048
     Dates: start: 20030922, end: 20050124
  2. CRESTOR [Suspect]
     Route: 048
     Dates: start: 20050125, end: 20050422
  3. CRESTOR [Suspect]
     Route: 048
     Dates: start: 20050530
  4. LIPANTHYL SUPRA [Suspect]
     Route: 048
     Dates: start: 20030922
  5. COUMADIN [Concomitant]
  6. POTASSIUM CHLORIDE KLC [Concomitant]
  7. PLAVIX [Concomitant]
  8. COZAAR [Concomitant]
  9. LASIX [Concomitant]
  10. ATIVAN [Concomitant]
  11. IMDUR [Concomitant]
  12. STUGERON [Concomitant]
  13. LORAMET [Concomitant]
  14. SPIRONOLACTONE [Concomitant]
  15. NEBILET [Concomitant]

REACTIONS (3)
  - ASTHENIA [None]
  - BLOOD CREATINE PHOSPHOKINASE INCREASED [None]
  - PYREXIA [None]
